FAERS Safety Report 8526264 (Version 2)
Quarter: 2012Q4

REPORT INFORMATION
  Report Type: 
  Country: US (occurrence: US)
  Receive Date: 20120423
  Receipt Date: 20121009
  Transmission Date: 20130627
  Serious: Yes (Death)
  Sender: FDA-Public Use
  Company Number: US-GLAXOSMITHKLINE-A0799394A

PATIENT
  Age: 50 Year
  Sex: Male
  Weight: 145 kg

DRUGS (6)
  1. AVANDIA [Suspect]
     Indication: DIABETES MELLITUS
     Dosage: 8MG Per day
     Route: 048
     Dates: start: 20040714, end: 20070715
  2. HCTZ [Concomitant]
  3. GLIPIZIDE [Concomitant]
  4. DIOVAN [Concomitant]
  5. ZOCOR [Concomitant]
  6. METFORMIN [Concomitant]

REACTIONS (3)
  - Myocardial infarction [Fatal]
  - Arrhythmia [Fatal]
  - Cardiac failure [Unknown]
